FAERS Safety Report 24862314 (Version 1)
Quarter: 2025Q1

REPORT INFORMATION
  Report Type: Spontaneous
  Country: US (occurrence: US)
  Receive Date: 20250120
  Receipt Date: 20250120
  Transmission Date: 20250409
  Serious: No
  Sender: PFIZER
  Company Number: US-PFIZER INC-202500011099

PATIENT
  Age: 42 Year
  Sex: Female

DRUGS (3)
  1. CIBINQO [Suspect]
     Active Substance: ABROCITINIB
     Indication: Dermatitis atopic
  2. CIBINQO [Suspect]
     Active Substance: ABROCITINIB
     Indication: Pruritus
     Dosage: 200 MG, DAILY
  3. CIBINQO [Suspect]
     Active Substance: ABROCITINIB
     Indication: Xerosis

REACTIONS (1)
  - Therapeutic product effect incomplete [Unknown]
